FAERS Safety Report 14531301 (Version 1)
Quarter: 2018Q1

REPORT INFORMATION
  Report Type: Spontaneous
  Country: DE (occurrence: DE)
  Receive Date: 20180214
  Receipt Date: 20180214
  Transmission Date: 20180509
  Serious: No
  Sender: FDA-Public Use
  Company Number: DE-HORMOSAN-2017-07400

PATIENT
  Age: 46 Year
  Sex: Female

DRUGS (2)
  1. PAROXETIN-HORMOSAN 40 MG TABLETTEN [Suspect]
     Active Substance: PAROXETINE HYDROCHLORIDE
     Indication: PANIC ATTACK
     Dosage: 40MG, QD, IN THE MORNING
     Route: 048
  2. PAROXETIN-HORMOSAN 40 MG TABLETTEN [Suspect]
     Active Substance: PAROXETINE HYDROCHLORIDE
     Indication: ANXIETY
     Dosage: 20 MG, QD, IN THE MORNING
     Route: 048

REACTIONS (7)
  - Amenorrhoea [Not Recovered/Not Resolved]
  - Vomiting [Recovered/Resolved]
  - Restlessness [Recovered/Resolved]
  - Muscular weakness [Recovered/Resolved]
  - Urticaria [Not Recovered/Not Resolved]
  - Constipation [Not Recovered/Not Resolved]
  - Dry mouth [Not Recovered/Not Resolved]
